FAERS Safety Report 9069301 (Version 2)
Quarter: 2013Q1

REPORT INFORMATION
  Report Type: Report from Study
  Country: US (occurrence: US)
  Receive Date: 20130215
  Receipt Date: 20130219
  Transmission Date: 20140127
  Serious: Yes (Other)
  Sender: FDA-Public Use
  Company Number: US-ROCHE-1191072

PATIENT
  Age: 51 None
  Sex: Male

DRUGS (7)
  1. PEGASYS [Suspect]
     Indication: HEPATITIS C
     Route: 058
     Dates: end: 201302
  2. TELAPREVIR [Suspect]
     Indication: HEPATITIS C
     Route: 065
     Dates: end: 201302
  3. RIBASPHERE [Suspect]
     Indication: HEPATITIS C
     Route: 065
     Dates: end: 201302
  4. PRILOSEC [Concomitant]
     Route: 065
  5. HYDROXYZINE [Concomitant]
     Route: 065
  6. LISINOPRIL [Concomitant]
     Route: 065
  7. HCTZ [Concomitant]
     Route: 065

REACTIONS (5)
  - Drug intolerance [Unknown]
  - Rash [Recovered/Resolved]
  - Renal failure [Unknown]
  - Anaemia [Recovering/Resolving]
  - Renal failure acute [Recovered/Resolved]
